FAERS Safety Report 5687878-9 (Version None)
Quarter: 2008Q1

REPORT INFORMATION
  Report Type: 
  Country: None (occurrence: None)
  Receive Date: 20080328
  Receipt Date: 20080225
  Transmission Date: 20080703
  Serious: No
  Sender: FDA-Public Use
  Company Number: US-BAYER-200815385NA

PATIENT
  Age: 33 Year
  Sex: Female
  Weight: 102 kg

DRUGS (1)
  1. YAZ [Suspect]
     Indication: ORAL CONTRACEPTION
     Route: 048

REACTIONS (2)
  - INFLUENZA [None]
  - METRORRHAGIA [None]
